FAERS Safety Report 5533795-4 (Version None)
Quarter: 2007Q4

REPORT INFORMATION
  Report Type: 
  Country: None (occurrence: None)
  Receive Date: 20071129
  Receipt Date: 20071126
  Transmission Date: 20080405
  Serious: Yes (Death)
  Sender: FDA-Public Use
  Company Number: 2007SP023730

PATIENT
  Age: 33 Year
  Sex: Male
  Weight: 60 kg

DRUGS (9)
  1. TEMODAL [Suspect]
     Indication: GLIOBLASTOMA MULTIFORME
     Dosage: 220 MG/M2;QD;PO;  340 MG/M2;QD;PO
     Route: 048
     Dates: start: 20070120, end: 20070124
  2. TEMODAL [Suspect]
     Indication: RECURRENT CANCER
     Dosage: 220 MG/M2;QD;PO;  340 MG/M2;QD;PO
     Route: 048
     Dates: start: 20070120, end: 20070124
  3. TEMODAL [Suspect]
     Indication: GLIOBLASTOMA MULTIFORME
     Dosage: 220 MG/M2;QD;PO;  340 MG/M2;QD;PO
     Route: 048
     Dates: start: 20070217, end: 20070221
  4. TEMODAL [Suspect]
     Indication: RECURRENT CANCER
     Dosage: 220 MG/M2;QD;PO;  340 MG/M2;QD;PO
     Route: 048
     Dates: start: 20070217, end: 20070221
  5. TEMODAL [Suspect]
     Indication: GLIOBLASTOMA MULTIFORME
     Dosage: 220 MG/M2;QD;PO;  340 MG/M2;QD;PO
     Route: 048
     Dates: start: 20070425, end: 20070429
  6. TEMODAL [Suspect]
     Indication: RECURRENT CANCER
     Dosage: 220 MG/M2;QD;PO;  340 MG/M2;QD;PO
     Route: 048
     Dates: start: 20070425, end: 20070429
  7. TEMODAL [Suspect]
     Indication: GLIOBLASTOMA MULTIFORME
     Dosage: 220 MG/M2;QD;PO;  340 MG/M2;QD;PO
     Route: 048
     Dates: start: 20070626, end: 20070630
  8. TEMODAL [Suspect]
     Indication: RECURRENT CANCER
     Dosage: 220 MG/M2;QD;PO;  340 MG/M2;QD;PO
     Route: 048
     Dates: start: 20070626, end: 20070630
  9. BAKTAR [Concomitant]

REACTIONS (4)
  - DISEASE PROGRESSION [None]
  - GASTRIC CANCER [None]
  - NEOPLASM PROGRESSION [None]
  - PLATELET COUNT DECREASED [None]
